FAERS Safety Report 8079966-7 (Version None)
Quarter: 2012Q1

REPORT INFORMATION
  Report Type: 
  Country: None (occurrence: None)
  Receive Date: 20120128
  Receipt Date: 20110802
  Transmission Date: 20120608
  Serious: No
  Sender: FDA-Public Use
  Company Number: US-ABBOTT-11P-163-0843554-00

PATIENT
  Age: 40 Year
  Sex: Female

DRUGS (7)
  1. CELEBREX [Concomitant]
     Indication: PAIN
  2. PREDNISONE TAB [Concomitant]
     Indication: PRODUCT USED FOR UNKNOWN INDICATION
  3. CALCIUM [Concomitant]
     Indication: SUPPLEMENTATION THERAPY
     Dosage: TWICE DAILY
  4. HUMIRA [Suspect]
     Indication: ARTHRITIS
     Dates: start: 20110627
  5. DEXILANT [Concomitant]
     Indication: REFLUX LARYNGITIS
  6. FOLIC ACID [Concomitant]
     Indication: PRODUCT USED FOR UNKNOWN INDICATION
  7. IRON [Concomitant]
     Indication: PRODUCT USED FOR UNKNOWN INDICATION
     Dosage: DAILY

REACTIONS (3)
  - PYREXIA [None]
  - PRURITUS [None]
  - RASH [None]
